FAERS Safety Report 17991850 (Version 1)
Quarter: 2020Q3

REPORT INFORMATION
  Report Type: Spontaneous
  Country: US (occurrence: US)
  Receive Date: 20200707
  Receipt Date: 20200707
  Transmission Date: 20201103
  Serious: No
  Sender: FDA-Public Use
  Company Number: US-BEH-2020119367

PATIENT
  Sex: Female

DRUGS (2)
  1. ZEMAIRA [Suspect]
     Active Substance: .ALPHA.1-PROTEINASE INHIBITOR HUMAN
     Dosage: INCREASED THE DOSE TWICE TO 90MG/KG
     Route: 065
     Dates: start: 2010
  2. ZEMAIRA [Suspect]
     Active Substance: .ALPHA.1-PROTEINASE INHIBITOR HUMAN
     Dosage: INCREASED THE DOSE TWICE TO 90MG/KG
     Route: 065
     Dates: start: 2010

REACTIONS (2)
  - No adverse event [Unknown]
  - Therapy change [Unknown]
